FAERS Safety Report 6782564-6 (Version None)
Quarter: 2010Q2

REPORT INFORMATION
  Report Type: 
  Country: None (occurrence: None)
  Receive Date: 20100621
  Receipt Date: 20100609
  Transmission Date: 20101027
  Serious: Yes (Other)
  Sender: FDA-Public Use
  Company Number: US-WYE-H15620310

PATIENT
  Sex: Male

DRUGS (2)
  1. PRISTIQ [Suspect]
     Dosage: UNKNOWN
  2. PRISTIQ [Suspect]
     Dosage: INCREASED TO 100 MG, FREQUENCY UNKNOWN

REACTIONS (1)
  - SUICIDAL IDEATION [None]
